FAERS Safety Report 17433864 (Version 1)
Quarter: 2020Q1

REPORT INFORMATION
  Report Type: Spontaneous
  Country: US (occurrence: US)
  Receive Date: 20200219
  Receipt Date: 20200219
  Transmission Date: 20200409
  Serious: No
  Sender: FDA-Public Use
  Company Number: US-009507513-2002USA000389

PATIENT
  Age: 48 Year
  Sex: Male

DRUGS (2)
  1. PROVENTIL [Suspect]
     Active Substance: ALBUTEROL
     Dosage: 2 BREATHS AS NEEDED
     Route: 055
  2. PROVENTIL [Suspect]
     Active Substance: ALBUTEROL
     Dosage: 2 BREATHS AS NEEDED
     Route: 055

REACTIONS (5)
  - Product quality issue [Unknown]
  - Poor quality device used [Unknown]
  - Wrong technique in product usage process [Unknown]
  - Inappropriate schedule of product administration [Unknown]
  - No adverse event [Unknown]

NARRATIVE: CASE EVENT DATE: 202001
